FAERS Safety Report 5077407-5 (Version None)
Quarter: 2006Q3

REPORT INFORMATION
  Report Type: 
  Country: None (occurrence: None)
  Receive Date: 20060810
  Receipt Date: 20060215
  Transmission Date: 20061208
  Serious: No
  Sender: FDA-Public Use
  Company Number: US-GLAXOSMITHKLINE-A0593837A

PATIENT
  Age: 58 Year
  Sex: Female

DRUGS (9)
  1. PAXIL [Suspect]
     Indication: DEPRESSION
     Dosage: 20MG PER DAY
     Route: 048
     Dates: start: 20020101
  2. PAXIL CR [Suspect]
     Indication: DEPRESSION
     Route: 048
  3. AVANDIA [Concomitant]
  4. AMARYL [Concomitant]
  5. DIOVAN [Concomitant]
  6. DIURETIC [Concomitant]
  7. ENAPRIL [Concomitant]
  8. LEVOXYL [Concomitant]
  9. TRANXENE (CLORAZEPATE DIPOTASSIQUE) [Concomitant]

REACTIONS (2)
  - INSOMNIA [None]
  - NERVOUSNESS [None]
